FAERS Safety Report 8327971-5 (Version None)
Quarter: 2012Q2

REPORT INFORMATION
  Report Type: 
  Country: None (occurrence: None)
  Receive Date: 20120502
  Receipt Date: 20120424
  Transmission Date: 20120825
  Serious: Yes (Hospitalization)
  Sender: FDA-Public Use
  Company Number: US-BAYER-2012-017008

PATIENT
  Age: 30 Year
  Sex: Female
  Weight: 77.098 kg

DRUGS (5)
  1. ORTHO TRI-CYCLEN [Concomitant]
     Indication: CONTRACEPTION
     Dosage: UNK UNK, PRN
  2. MIDOL EXTENDED RELIEF CAPLETS [Concomitant]
  3. IBUPROFEN (ADVIL) [Concomitant]
  4. YAZ [Suspect]
     Indication: CONTRACEPTION
     Dosage: UNK
     Route: 048
     Dates: start: 20081201, end: 20090601
  5. EXCEDRIN (MIGRAINE) [Concomitant]
     Indication: MIGRAINE
     Dosage: UNK UNK, PRN
     Route: 048

REACTIONS (2)
  - PULMONARY EMBOLISM [None]
  - MENTAL DISORDER [None]
